FAERS Safety Report 8433572-0 (Version None)
Quarter: 2012Q2

REPORT INFORMATION
  Report Type: 
  Country: None (occurrence: None)
  Receive Date: 20120613
  Receipt Date: 20120609
  Transmission Date: 20120825
  Serious: Yes (Other)
  Sender: FDA-Public Use
  Company Number: US-PFIZER INC-2012138820

PATIENT
  Age: 83 Year
  Sex: Female

DRUGS (2)
  1. ATORVASTATIN CALCIUM [Suspect]
     Indication: ARTERIAL OCCLUSIVE DISEASE
     Dosage: UNK
  2. CRESTOR [Suspect]
     Indication: ARTERIAL OCCLUSIVE DISEASE
     Dosage: UNK

REACTIONS (4)
  - NAUSEA [None]
  - GAIT DISTURBANCE [None]
  - MALAISE [None]
  - ARTERIAL OCCLUSIVE DISEASE [None]
